FAERS Safety Report 7983660-8 (Version None)
Quarter: 2011Q4

REPORT INFORMATION
  Report Type: 
  Country: None (occurrence: None)
  Receive Date: 20111215
  Receipt Date: 20111205
  Transmission Date: 20120403
  Serious: Yes (Life-Threatening)
  Sender: FDA-Public Use
  Company Number: US-RB-034909-11

PATIENT
  Sex: Male

DRUGS (3)
  1. SUBUTEX [Suspect]
     Indication: DRUG DEPENDENCE
     Route: 063
     Dates: start: 20111121, end: 20111123
  2. SUBUTEX [Suspect]
     Dosage: 8 MG DAILY TAPERED DOWN TO 2 MG TWICE
     Route: 064
     Dates: start: 20110323, end: 20111121
  3. SUBOXONE [Suspect]
     Route: 064
     Dates: start: 20110122, end: 20110322

REACTIONS (3)
  - FOETAL EXPOSURE DURING PREGNANCY [None]
  - STOOL ANALYSIS ABNORMAL [None]
  - EXPOSURE DURING BREAST FEEDING [None]
